FAERS Safety Report 14534271 (Version 1)
Quarter: 2018Q1

REPORT INFORMATION
  Report Type: Spontaneous
  Country: CA (occurrence: CA)
  Receive Date: 20180215
  Receipt Date: 20180215
  Transmission Date: 20180509
  Serious: Yes (Other)
  Sender: FDA-Public Use
  Company Number: PHHY2018CA021687

PATIENT
  Age: 52 Year
  Sex: Female

DRUGS (1)
  1. NEORAL [Suspect]
     Active Substance: CYCLOSPORINE
     Indication: PRODUCT USED FOR UNKNOWN INDICATION
     Route: 065

REACTIONS (7)
  - Arthritis [Unknown]
  - Cardiac murmur [Unknown]
  - Heart valve incompetence [Unknown]
  - Cystitis [Unknown]
  - Arrhythmia [Unknown]
  - Neoplasm malignant [Unknown]
  - Arthralgia [Unknown]
